FAERS Safety Report 22235776 (Version 2)
Quarter: 2023Q2

REPORT INFORMATION
  Report Type: Spontaneous
  Country: US (occurrence: US)
  Receive Date: 20230420
  Receipt Date: 20230605
  Transmission Date: 20230722
  Serious: No
  Sender: FDA-Public Use
  Company Number: US-BRISTOL-MYERS SQUIBB COMPANY-2023-055824

PATIENT
  Age: 83 Year
  Sex: Female

DRUGS (1)
  1. POMALYST [Suspect]
     Active Substance: POMALIDOMIDE
     Indication: Plasma cell myeloma
     Dosage: FREQUENCY: TAKE 1 CAPSULE BY MOUTH W/ OR W/O FOOD AT SAME TIME
     Route: 048
     Dates: start: 20230327

REACTIONS (4)
  - Lethargy [Unknown]
  - Asthenia [Unknown]
  - Fatigue [Unknown]
  - Dehydration [Unknown]
